FAERS Safety Report 8310166-9 (Version None)
Quarter: 2012Q2

REPORT INFORMATION
  Report Type: 
  Country: None (occurrence: None)
  Receive Date: 20120425
  Receipt Date: 20120418
  Transmission Date: 20120825
  Serious: Yes (Hospitalization)
  Sender: FDA-Public Use
  Company Number: US-BAYER-201015998NA

PATIENT
  Age: 48 Year
  Sex: Female
  Weight: 56.689 kg

DRUGS (1)
  1. YASMIN [Suspect]
     Indication: MENSTRUATION IRREGULAR
     Dosage: UNK
     Dates: start: 20050724, end: 20060119

REACTIONS (1)
  - DEEP VEIN THROMBOSIS [None]
